FAERS Safety Report 4588990-8 (Version None)
Quarter: 2005Q1

REPORT INFORMATION
  Report Type: 
  Country: None (occurrence: None)
  Receive Date: 20050216
  Receipt Date: 20050202
  Transmission Date: 20050727
  Serious: Yes (Other)
  Sender: FDA-Public Use
  Company Number: USA050289763

PATIENT
  Age: 50 Year
  Sex: Male

DRUGS (3)
  1. ALIMTA [Suspect]
  2. VITAMIN B-12 [Concomitant]
  3. FOLIC ACID [Concomitant]

REACTIONS (3)
  - FALL [None]
  - LIMB INJURY [None]
  - NEUROMYOPATHY [None]
